FAERS Safety Report 5252359-3 (Version None)
Quarter: 2007Q1

REPORT INFORMATION
  Report Type: 
  Country: None (occurrence: None)
  Receive Date: 20070301
  Receipt Date: 20061004
  Transmission Date: 20070707
  Serious: Yes (Death, Hospitalization)
  Sender: FDA-Public Use
  Company Number: US-BRISTOL-MYERS SQUIBB COMPANY-13460472

PATIENT
  Age: 60 Year
  Sex: Female

DRUGS (5)
  1. TAXOL [Suspect]
     Indication: OVARIAN CANCER
     Route: 042
     Dates: start: 20060606, end: 20060606
  2. CARBOPLATIN [Concomitant]
  3. BENADRYL [Concomitant]
     Indication: PREMEDICATION
  4. ANZEMET [Concomitant]
     Indication: PREMEDICATION
  5. DECADRON [Concomitant]
     Indication: PREMEDICATION

REACTIONS (1)
  - MALIGNANT NEOPLASM PROGRESSION [None]
